FAERS Safety Report 4361283-X (Version None)
Quarter: 2004Q2

REPORT INFORMATION
  Report Type: 
  Country: None (occurrence: None)
  Receive Date: 20040520
  Receipt Date: 20040507
  Transmission Date: 20050107
  Serious: Yes (Hospitalization)
  Sender: FDA-Public Use
  Company Number: ES-GLAXOSMITHKLINE-B0332445A

PATIENT
  Age: 32 Year
  Sex: Female

DRUGS (6)
  1. DARAPRIM [Suspect]
     Indication: TOXOPLASMOSIS
     Dosage: 50MG PER DAY
     Route: 048
     Dates: start: 20031008, end: 20031203
  2. SULFADIAZINE [Suspect]
     Indication: TOXOPLASMOSIS
     Dosage: 4G PER DAY
     Route: 048
     Dates: start: 20031008, end: 20031203
  3. LEDERFOLIN [Suspect]
     Indication: ANAEMIA
     Route: 048
     Dates: start: 20031010, end: 20031203
  4. RETROVIR [Concomitant]
     Indication: HIV INFECTION
     Dosage: 500MG PER DAY
     Route: 048
     Dates: start: 20030929
  5. VIRAMUNE [Concomitant]
     Indication: HIV INFECTION
     Dosage: 400MG PER DAY
     Route: 048
     Dates: start: 20030929
  6. EPIVIR [Concomitant]
     Indication: HIV INFECTION
     Dosage: 300MG PER DAY
     Route: 048
     Dates: start: 20030929

REACTIONS (1)
  - GRANULOCYTOPENIA [None]
